FAERS Safety Report 9002436 (Version 1)
Quarter: 2013Q1

REPORT INFORMATION
  Report Type: Spontaneous
  Country: US (occurrence: AU)
  Receive Date: 20130107
  Receipt Date: 20130107
  Transmission Date: 20140127
  Serious: Yes (Other)
  Sender: FDA-Public Use
  Company Number: US-ABBOTT-13P-163-1032167-00

PATIENT
  Sex: 0

DRUGS (6)
  1. HUMIRA [Suspect]
     Indication: CROHN^S DISEASE
  2. PREDNISONE [Concomitant]
     Indication: PRODUCT USED FOR UNKNOWN INDICATION
     Dosage: LONG TERM
  3. 6MP [Concomitant]
     Indication: PRODUCT USED FOR UNKNOWN INDICATION
  4. RIZORAL [Concomitant]
     Indication: PRODUCT USED FOR UNKNOWN INDICATION
  5. VITAMINS [Concomitant]
     Indication: VITAMIN SUPPLEMENTATION
  6. B12-VITAMIN [Concomitant]

REACTIONS (5)
  - Intestinal ulcer [Unknown]
  - Intestinal stenosis [Unknown]
  - Diarrhoea [Not Recovered/Not Resolved]
  - Pain [Unknown]
  - Weight increased [Unknown]
